FAERS Safety Report 7932325-7 (Version None)
Quarter: 2011Q4

REPORT INFORMATION
  Report Type: 
  Country: None (occurrence: None)
  Receive Date: 20111121
  Receipt Date: 20111116
  Transmission Date: 20120403
  Serious: Yes (Other)
  Sender: FDA-Public Use
  Company Number: US-MERCK-1111USA02216

PATIENT
  Age: 65 Year
  Sex: Female
  Weight: 84 kg

DRUGS (7)
  1. ADAPALENE [Suspect]
     Indication: ACNE
     Route: 061
     Dates: start: 20110701
  2. NOVOLOG [Concomitant]
     Route: 065
  3. PRINIVIL [Suspect]
     Route: 048
     Dates: start: 20110506, end: 20111006
  4. VERAPAMIL [Concomitant]
     Route: 065
  5. PREDNISONE [Suspect]
     Route: 048
     Dates: end: 20110823
  6. SOLODYN [Suspect]
     Indication: ACNE
     Route: 048
     Dates: start: 20110701, end: 20110830
  7. EFFEXOR [Concomitant]
     Route: 065

REACTIONS (3)
  - DRUG DISPENSING ERROR [None]
  - BLOOD GLUCOSE INCREASED [None]
  - WRONG DRUG ADMINISTERED [None]
